FAERS Safety Report 7009735 (Version 4)
Quarter: 2014Q3

REPORT INFORMATION
  Report Type: Spontaneous
  Country: US (occurrence: None)
  Receive Date: 20090526
  Receipt Date: 20140925
  Transmission Date: 20150326
  Serious: Yes (Hospitalization, Other)
  Sender: FDA-Public Use
  Company Number: 2009S1004132

PATIENT
  Age: 59 Year
  Sex: Male

DRUGS (7)
  1. PLAVIX/01220702/(CLOPIDOGREL BISULFATE) [Concomitant]
  2. BENICAR(OLMESARTAN MEDOXOMIL) [Concomitant]
  3. ZANTAC/00550802(RANITIDIEN HYDROCHLORIDE) [Concomitant]
  4. ASPIRIN(ACETYLSALICYLIC ACID) [Concomitant]
     Active Substance: ASPIRIN
  5. PHOSPHO-SODA [Suspect]
     Active Substance: SODIUM PHOSPHATE, DIBASIC\SODIUM PHOSPHATE, MONOBASIC
     Indication: COLONOSCOPY
     Dosage: ;PO
     Route: 048
     Dates: start: 20070614, end: 20070614
  6. HYDROCHLOROTHIAZIDE. [Concomitant]
     Active Substance: HYDROCHLOROTHIAZIDE
  7. CRESTOR/01588601(ROSUVASTATIN CALCIUM) [Concomitant]

REACTIONS (10)
  - Renal failure acute [None]
  - Hypokalaemia [None]
  - Pleural effusion [None]
  - Renal tubular necrosis [None]
  - Renal failure chronic [None]
  - Nephrogenic anaemia [None]
  - Abdominal pain [None]
  - Procedural hypotension [None]
  - Acute phosphate nephropathy [None]
  - Headache [None]

NARRATIVE: CASE EVENT DATE: 20070616
